FAERS Safety Report 6878096-7 (Version None)
Quarter: 2010Q2

REPORT INFORMATION
  Report Type: 
  Country: None (occurrence: None)
  Receive Date: 20100616
  Receipt Date: 20100217
  Transmission Date: 20101027
  Serious: No
  Sender: FDA-Public Use
  Company Number: DSA_42651_2010

PATIENT
  Sex: Female

DRUGS (4)
  1. XENAZINE [Suspect]
     Indication: TREMOR
     Dosage: 12.5 MG QD ORAL, 12.5 MG BID ORAL, 12.5 MG QAM, 25 MG QPM ORAL, 25 MG BID ORAL
     Route: 048
     Dates: start: 20091207, end: 20091214
  2. XENAZINE [Suspect]
     Indication: TREMOR
     Dosage: 12.5 MG QD ORAL, 12.5 MG BID ORAL, 12.5 MG QAM, 25 MG QPM ORAL, 25 MG BID ORAL
     Route: 048
     Dates: start: 20091215, end: 20091221
  3. XENAZINE [Suspect]
     Indication: TREMOR
     Dosage: 12.5 MG QD ORAL, 12.5 MG BID ORAL, 12.5 MG QAM, 25 MG QPM ORAL, 25 MG BID ORAL
     Route: 048
     Dates: start: 20091222, end: 20091228
  4. XENAZINE [Suspect]
     Indication: TREMOR
     Dosage: 12.5 MG QD ORAL, 12.5 MG BID ORAL, 12.5 MG QAM, 25 MG QPM ORAL, 25 MG BID ORAL
     Route: 048
     Dates: start: 20091229, end: 20100201

REACTIONS (2)
  - FATIGUE [None]
  - SOMNOLENCE [None]
